FAERS Safety Report 8107913-8 (Version None)
Quarter: 2012Q1

REPORT INFORMATION
  Report Type: 
  Country: None (occurrence: None)
  Receive Date: 20120202
  Receipt Date: 20120124
  Transmission Date: 20120608
  Serious: Yes (Hospitalization)
  Sender: FDA-Public Use
  Company Number: US-MERCK-1106USA02917

PATIENT
  Age: 74 Year
  Sex: Female
  Weight: 81 kg

DRUGS (50)
  1. CELEBREX [Concomitant]
     Route: 048
  2. SYNTHROID [Concomitant]
     Indication: HYPOTHYROIDISM
     Route: 048
     Dates: start: 19810101
  3. SKELAXIN [Concomitant]
     Route: 048
  4. LIFE EXTENSION SUPER K WITH K2 [Concomitant]
     Route: 048
  5. AMBIEN [Concomitant]
     Route: 065
  6. FOLIC ACID [Concomitant]
     Route: 065
  7. NEXIUM [Concomitant]
     Route: 048
  8. VITAMIN B COMPLEX [Concomitant]
     Route: 048
  9. RESTORIL [Concomitant]
     Route: 048
     Dates: end: 20100101
  10. HYDROCODONE [Concomitant]
     Route: 065
  11. SIMVASTATIN [Concomitant]
     Route: 065
     Dates: end: 20080101
  12. CORRECTOL [Concomitant]
     Route: 065
  13. PRAVACHOL [Concomitant]
     Route: 048
  14. SENNA [Concomitant]
     Route: 065
  15. UBIDECARENONE [Concomitant]
     Route: 048
  16. GRAPE SEEDS AND PHOSPHATIDYL CHOLINE AND RESVERATROL [Concomitant]
     Route: 065
  17. EVOXAC [Concomitant]
     Route: 065
  18. FOSAMAX [Suspect]
     Route: 048
     Dates: start: 20080220, end: 20091109
  19. VITAMINS (UNSPECIFIED) [Concomitant]
     Route: 048
  20. ULTRAM [Concomitant]
     Route: 048
  21. ASCORBIC ACID [Concomitant]
     Route: 065
  22. TEA [Concomitant]
     Route: 048
  23. OMEPRAZOLE [Concomitant]
     Route: 048
  24. ZOCOR [Concomitant]
     Route: 048
  25. LORAZEPAM [Concomitant]
     Route: 065
  26. PRILOSEC [Concomitant]
     Route: 048
     Dates: start: 20000101
  27. OMEGA-3 MARINE TRIGLYCERIDES [Concomitant]
     Route: 065
  28. CRANBERRY [Concomitant]
     Route: 065
  29. GARLIC [Concomitant]
     Route: 065
  30. ICAPS [Concomitant]
     Route: 048
  31. VITAMIN D (UNSPECIFIED) [Concomitant]
     Route: 048
  32. OSTEO-BI-FLEX [Concomitant]
     Route: 065
  33. ANUSOL (BISMUTH OXIDE (+) BISMUTH SUBGALLATE (+) PERUVIAN BALSAM (+) Z [Concomitant]
     Route: 054
  34. FOSAMAX [Suspect]
     Route: 048
     Dates: start: 20060101
  35. FOSAMAX [Suspect]
     Indication: OSTEOPENIA
     Route: 048
     Dates: start: 20060101, end: 20100823
  36. CITRACAL + D [Concomitant]
     Route: 065
  37. CITRUCEL (CALCIUM CARBONATE (+) CHOLECALCIFEROL (+) METHYLCELLULOSE) [Concomitant]
     Route: 065
  38. IMMUNOTEC IMMUNOCAL [Concomitant]
     Route: 065
  39. GASTROINTESTINAL PREPARATIONS (UNSPECIFIED) [Concomitant]
     Route: 065
  40. VYTORIN [Concomitant]
     Route: 048
  41. IBUPROFEN [Concomitant]
     Route: 048
  42. BORAGE OIL AND FLAXSEED AND OMEGA-3 MARINE TRIGLYCERIDES AND SAFFLOWER [Concomitant]
     Route: 065
  43. LIFE EXTENSION SUPER OMEGA-3 [Concomitant]
     Route: 065
  44. ANALGESIC (UNSPECIFIED) [Concomitant]
     Route: 048
  45. FLUOXETINE [Concomitant]
     Route: 048
  46. LEVOTHYROXINE SODIUM [Concomitant]
     Route: 048
  47. RESTASIS [Concomitant]
     Route: 047
  48. ANTIOXIDANTS (UNSPECIFIED) [Concomitant]
     Route: 065
  49. GINGER [Concomitant]
     Route: 065
  50. SIMPLY SLEEP [Concomitant]
     Route: 065

REACTIONS (34)
  - HYPERTENSION [None]
  - HUMERUS FRACTURE [None]
  - ACTINIC KERATOSIS [None]
  - COUGH [None]
  - FEMUR FRACTURE [None]
  - PHARYNGITIS [None]
  - MAJOR DEPRESSION [None]
  - FRACTURE NONUNION [None]
  - LOWER GASTROINTESTINAL HAEMORRHAGE [None]
  - ARTHROPATHY [None]
  - HAEMORRHOIDS [None]
  - VENOUS INSUFFICIENCY [None]
  - UMBILICAL HERNIA [None]
  - TRIGGER FINGER [None]
  - MYALGIA [None]
  - URINARY TRACT INFECTION [None]
  - TYPE 2 DIABETES MELLITUS [None]
  - PAIN IN EXTREMITY [None]
  - DRY EYE [None]
  - OSTEOARTHRITIS [None]
  - DEPRESSION [None]
  - DEVICE FAILURE [None]
  - THROMBOCYTOPENIA [None]
  - HAEMORRHAGIC ANAEMIA [None]
  - HYPOTENSION [None]
  - WEIGHT INCREASED [None]
  - MUSCULOSKELETAL PAIN [None]
  - DRY MOUTH [None]
  - MUSCLE SPASMS [None]
  - DYSLIPIDAEMIA [None]
  - FALL [None]
  - ADENOIDAL DISORDER [None]
  - LIMB DISCOMFORT [None]
  - ANAEMIA [None]
